FAERS Safety Report 9670350 (Version 1)
Quarter: 2013Q4

REPORT INFORMATION
  Report Type: Spontaneous
  Country: CH (occurrence: CH)
  Receive Date: 20131105
  Receipt Date: 20131105
  Transmission Date: 20140711
  Serious: Yes (Hospitalization)
  Sender: FDA-Public Use
  Company Number: PHHY2013CH123602

PATIENT
  Age: 60 Year
  Sex: Male

DRUGS (4)
  1. ITRACONAZOLE [Suspect]
     Indication: FUNGAL SKIN INFECTION
     Dosage: 200 MG, QD
     Route: 048
     Dates: start: 201209
  2. BETA BLOCKERS [Concomitant]
  3. ACE INHIBITOR NOS [Concomitant]
  4. DIURETICS [Concomitant]

REACTIONS (4)
  - Brain natriuretic peptide increased [Recovering/Resolving]
  - Blood pressure systolic increased [Recovering/Resolving]
  - Blood creatinine increased [Recovering/Resolving]
  - Dyspnoea [Recovering/Resolving]
